FAERS Safety Report 26000399 (Version 2)
Quarter: 2025Q4

REPORT INFORMATION
  Report Type: Spontaneous
  Country: US (occurrence: US)
  Receive Date: 20251105
  Receipt Date: 20251224
  Transmission Date: 20260117
  Serious: Yes (Other)
  Sender: ANI
  Company Number: US-ANIPHARMA-2025-US-036991

PATIENT
  Age: 72 Year
  Sex: Male
  Weight: 122.92 kg

DRUGS (21)
  1. CORTICOTROPIN [Suspect]
     Active Substance: CORTICOTROPIN
     Indication: Polymyalgia rheumatica
     Dosage: 80 UNITS TWICE WEEKLY ON MONDAY AND THURSDAY
     Route: 058
     Dates: start: 20250605
  2. SERTRALINE HYDROCHLORIDE [Concomitant]
     Active Substance: SERTRALINE HYDROCHLORIDE
  3. ALLOPURINOL [Concomitant]
     Active Substance: ALLOPURINOL
  4. ALPRAZOLAM [Concomitant]
     Active Substance: ALPRAZOLAM
  5. VITAMINS [Concomitant]
     Active Substance: VITAMINS
  6. ASPIRIN [Concomitant]
     Active Substance: ASPIRIN
  7. MEMANTINE HYDROCHLORIDE [Concomitant]
     Active Substance: MEMANTINE HYDROCHLORIDE
  8. DOCUSATE SODIUM [Concomitant]
     Active Substance: DOCUSATE SODIUM
  9. KLOR-CON M20 [Concomitant]
     Active Substance: POTASSIUM CHLORIDE
  10. BUMETANIDE [Concomitant]
     Active Substance: BUMETANIDE
  11. METHOCARBAMOL [Concomitant]
     Active Substance: METHOCARBAMOL
  12. BUMEX [Concomitant]
     Active Substance: BUMETANIDE
  13. METHYLPHENIDATE HYDROCHLORIDE [Concomitant]
     Active Substance: METHYLPHENIDATE HYDROCHLORIDE
  14. MELATONIN [Concomitant]
     Active Substance: MELATONIN
  15. DONEPEZIL HYDROCHLORIDE [Concomitant]
     Active Substance: DONEPEZIL HYDROCHLORIDE
  16. PANTOPRAZOLE SODIUM [Concomitant]
     Active Substance: PANTOPRAZOLE SODIUM
  17. DULOXETINE HYDROCHLORIDE [Concomitant]
     Active Substance: DULOXETINE HYDROCHLORIDE
  18. METOPROLOL TARTRATE [Concomitant]
     Active Substance: METOPROLOL TARTRATE
  19. IRON [Concomitant]
     Active Substance: IRON
  20. PREDNISONE [Concomitant]
     Active Substance: PREDNISONE
  21. FLUTICASONE PROPIONATE [Concomitant]
     Active Substance: FLUTICASONE PROPIONATE

REACTIONS (11)
  - Contraindicated product administered [Unknown]
  - Urinary tract infection [Unknown]
  - Dyspnoea [Unknown]
  - Fluid retention [Unknown]
  - Swelling [Recovering/Resolving]
  - Oedema [Unknown]
  - Dyspnoea [Not Recovered/Not Resolved]
  - Weight increased [Recovering/Resolving]
  - Glaucoma [Unknown]
  - Condition aggravated [Unknown]
  - Product use in unapproved indication [Unknown]

NARRATIVE: CASE EVENT DATE: 20250601
